FAERS Safety Report 9128693 (Version 3)
Quarter: 2013Q3

REPORT INFORMATION
  Report Type: Report from Study
  Country: DE (occurrence: DE)
  Receive Date: 20130125
  Receipt Date: 20130806
  Transmission Date: 20140515
  Serious: Yes (Hospitalization)
  Sender: FDA-Public Use
  Company Number: DE-AMGEN-DEUCT2013005512

PATIENT
  Age: 40 Year
  Sex: Female
  Weight: 58 kg

DRUGS (6)
  1. ETANERCEPT [Suspect]
     Indication: PSORIATIC ARTHROPATHY
     Dosage: 50 MG, QWK
     Route: 058
     Dates: start: 20111201, end: 201205
  2. MTX                                /00113801/ [Concomitant]
     Indication: PSORIATIC ARTHROPATHY
     Dosage: 15 MG, WEEKLY
     Route: 048
     Dates: start: 20110617
  3. CELEBREX [Concomitant]
     Indication: PSORIATIC ARTHROPATHY
     Dosage: 200 MG, AS NEEDED
     Route: 048
     Dates: start: 201008
  4. CELEBREX [Concomitant]
     Dosage: 200 MG, AS NEEDED
     Route: 048
     Dates: start: 201201
  5. FOLIC ACID [Concomitant]
     Indication: PSORIATIC ARTHROPATHY
     Dosage: 5 MG, WEEKLY
     Route: 048
     Dates: start: 201106
  6. NOVAMINOSULFON [Concomitant]
     Dosage: 500 MG, AS NEEDED
     Dates: start: 201207

REACTIONS (2)
  - Pyrexia [Recovered/Resolved]
  - Bronchitis [Recovered/Resolved]
